FAERS Safety Report 4348314-8 (Version None)
Quarter: 2004Q2

REPORT INFORMATION
  Report Type: 
  Country: None (occurrence: None)
  Receive Date: 20040422
  Receipt Date: 20040407
  Transmission Date: 20050107
  Serious: Yes (Other)
  Sender: FDA-Public Use
  Company Number: FR_040403897

PATIENT
  Age: 67 Year
  Sex: Male
  Weight: 75 kg

DRUGS (5)
  1. GEMZAR [Suspect]
     Indication: NON-SMALL CELL LUNG CANCER
     Dosage: 2375 MG OTHER
     Route: 050
     Dates: start: 20040323
  2. OXALIPLATINE [Suspect]
     Indication: NON-SMALL CELL LUNG CANCER
     Dosage: 247 MG OTHER
     Route: 050
     Dates: start: 20040323
  3. DILTIAZEM HYDROCHLORIDE [Concomitant]
  4. INDAPAMIDE [Concomitant]
  5. PLAVIX [Concomitant]

REACTIONS (6)
  - ANXIETY [None]
  - BRADYCARDIA [None]
  - HYPOTENSION [None]
  - MALAISE [None]
  - SEDATION [None]
  - SYNCOPE VASOVAGAL [None]
